FAERS Safety Report 7593118-6 (Version None)
Quarter: 2011Q3

REPORT INFORMATION
  Report Type: 
  Country: None (occurrence: None)
  Receive Date: 20110706
  Receipt Date: 20110628
  Transmission Date: 20111222
  Serious: Yes (Death, Other)
  Sender: FDA-Public Use
  Company Number: US-GENZYME-CERZ-1001695

PATIENT

DRUGS (2)
  1. CEREZYME [Suspect]
     Indication: GAUCHER'S DISEASE
     Dosage: 4400 U, Q2W
     Route: 042
     Dates: start: 19980701, end: 20100101
  2. ZOMETA [Concomitant]
     Indication: OSTEOPOROSIS
     Dosage: 2 MG, UNK
     Route: 042

REACTIONS (3)
  - RESPIRATORY FAILURE [None]
  - DEEP VEIN THROMBOSIS [None]
  - RENAL FAILURE [None]
